FAERS Safety Report 10669135 (Version 1)
Quarter: 2014Q4

REPORT INFORMATION
  Report Type: Report from Study
  Country: US (occurrence: US)
  Receive Date: 20141222
  Receipt Date: 20141222
  Transmission Date: 20150529
  Serious: Yes (Death)
  Sender: FDA-Public Use
  Company Number: US-BAXTER-2014BAX076060

PATIENT

DRUGS (4)
  1. BUSULFAN [Suspect]
     Active Substance: BUSULFAN
     Indication: HAEMATOLOGICAL MALIGNANCY
     Route: 042
  2. CYCLOPHOSPHAMIDE FOR INJECTION, USP [Suspect]
     Active Substance: CYCLOPHOSPHAMIDE
     Indication: HAEMATOLOGICAL MALIGNANCY
     Dosage: ON DAYS +3 AND +4
     Route: 042
  3. MESNA FOR INJECTION 1 GRAM [Suspect]
     Active Substance: MESNA
     Indication: HAEMATOLOGICAL MALIGNANCY
     Dosage: 4 DOSES EACH ON DAYS +3 AND +4
     Route: 065
  4. FLUDARABINE [Suspect]
     Active Substance: FLUDARABINE PHOSPHATE
     Indication: HAEMATOLOGICAL MALIGNANCY
     Route: 042

REACTIONS (1)
  - Disease progression [Fatal]
